FAERS Safety Report 7411746-5 (Version None)
Quarter: 2011Q2

REPORT INFORMATION
  Report Type: 
  Country: None (occurrence: None)
  Receive Date: 20110405
  Receipt Date: 20110317
  Transmission Date: 20111010
  Serious: Yes (Death)
  Sender: FDA-Public Use
  Company Number: 2011P1005257

PATIENT
  Age: 70 Year
  Sex: Female

DRUGS (18)
  1. LISINOPRIL [Suspect]
     Dosage: PO
     Route: 048
  2. ACETAMINOPHEN/OXYCODONE (NO PREF. NAME) [Suspect]
     Dosage: PO
     Route: 048
  3. CLONAZEPAM [Suspect]
     Dosage: PO
     Route: 048
  4. VITAMINS-MULTIPLE (NO PREF. NAME) [Suspect]
     Dosage: PO
     Route: 048
  5. DESIPRAMINE (NO PREF. NAME) [Suspect]
     Dosage: PO
     Route: 048
  6. ACETAMINOPHEN [Suspect]
     Dosage: PO
     Route: 048
  7. HYDROMORPHONE (NO PREF. NAME) [Suspect]
     Dosage: PO
     Route: 048
  8. FLUOXETINE [Suspect]
     Dosage: PO
     Route: 048
  9. DULOXETINE HYDROCHLORIDE [Suspect]
     Dosage: PO
     Route: 048
  10. PREGABALIN [Suspect]
     Dosage: PO
     Route: 048
  11. CHLORDIAZEPOXIDE [Suspect]
     Dosage: PO
     Route: 048
  12. CALCIUM (NO PREF. NAME) [Suspect]
     Dosage: PO
     Route: 048
  13. MELOXICAM [Suspect]
     Dosage: PO
     Route: 048
  14. METHADONE (NO PREF. NAME) [Suspect]
     Dosage: PO
     Route: 048
  15. CYCLOBENZAPRINE [Suspect]
     Dosage: PO
     Route: 048
  16. LOVASTATIN [Suspect]
     Dosage: PO
     Route: 048
  17. TORSEMIDE [Suspect]
     Dosage: PO
     Route: 048
  18. FOLIC ACID [Suspect]
     Dosage: PO
     Route: 048

REACTIONS (1)
  - COMPLETED SUICIDE [None]
